FAERS Safety Report 15587824 (Version 1)
Quarter: 2018Q4

REPORT INFORMATION
  Report Type: Spontaneous
  Country: US (occurrence: US)
  Receive Date: 20181105
  Receipt Date: 20181105
  Transmission Date: 20190205
  Serious: No
  Sender: FDA-Public Use
  Company Number: US-BAUSCH-BL-2018-029123

PATIENT
  Age: 1 Year
  Sex: Male

DRUGS (4)
  1. KEPPRA [Concomitant]
     Active Substance: LEVETIRACETAM
     Indication: PRODUCT USED FOR UNKNOWN INDICATION
  2. KLONOPIN [Concomitant]
     Active Substance: CLONAZEPAM
     Indication: PRODUCT USED FOR UNKNOWN INDICATION
  3. DIAZEGEL [Suspect]
     Active Substance: DIAZEPAM
     Indication: SEIZURE
     Dosage: LAST DOSE WAS IN APPROXIMATELY 2017
     Route: 065
     Dates: start: 2013
  4. PROPIONATE [Concomitant]
     Indication: PRODUCT USED FOR UNKNOWN INDICATION

REACTIONS (4)
  - Somnolence [Unknown]
  - Ill-defined disorder [Unknown]
  - Lethargy [Unknown]
  - Influenza [Unknown]

NARRATIVE: CASE EVENT DATE: 2013
